FAERS Safety Report 6988560-8 (Version None)
Quarter: 2010Q3

REPORT INFORMATION
  Report Type: 
  Country: None (occurrence: None)
  Receive Date: 20100827
  Receipt Date: 20100617
  Transmission Date: 20110219
  Serious: Yes (Life-Threatening)
  Sender: FDA-Public Use
  Company Number: 002500

PATIENT
  Sex: Female

DRUGS (3)
  1. LACOSAMIDE [Suspect]
     Indication: PARTIAL SEIZURES
     Dosage: 50 MG BID ORAL
     Route: 048
     Dates: start: 20090712, end: 20090714
  2. TOPAMAX [Concomitant]
  3. KEPPRA [Concomitant]

REACTIONS (1)
  - SUICIDAL IDEATION [None]
